FAERS Safety Report 18325481 (Version 3)
Quarter: 2020Q4

REPORT INFORMATION
  Report Type: Spontaneous
  Country: US (occurrence: US)
  Receive Date: 20200929
  Receipt Date: 20201125
  Transmission Date: 20210113
  Serious: No
  Sender: FDA-Public Use
  Company Number: US-PFIZER INC-2020372945

PATIENT
  Age: 58 Year
  Sex: Female
  Weight: 90.7 kg

DRUGS (10)
  1. IBRANCE [Suspect]
     Active Substance: PALBOCICLIB
     Indication: BREAST CANCER
     Dosage: 125 MG,  DAILY FOR 21 DAYS OUT OF 28 DAYS
     Route: 048
     Dates: start: 20200907
  2. TAMOXIFEN CITRATE. [Concomitant]
     Active Substance: TAMOXIFEN CITRATE
     Dosage: UNK
  3. IBRANCE [Suspect]
     Active Substance: PALBOCICLIB
     Dosage: 125 MG,  DAILY, DAYS 1-21 OUT OF 28 DAYS
     Route: 048
  4. SUPER B COMPLEX [VITAMIN B COMPLEX] [Concomitant]
     Dosage: UNK
  5. CAL MAG ZINC+D [Concomitant]
     Dosage: UNK (333MG-133 TABLET)
  6. KRILL OIL [Concomitant]
     Active Substance: DIETARY SUPPLEMENT\KRILL OIL
     Dosage: UNK [1000-130 MG]
  7. VITAMIN D [ERGOCALCIFEROL] [Concomitant]
     Active Substance: ERGOCALCIFEROL
     Dosage: UNK [VITAMIN D-400 10 MCG]
  8. KELP [IODINE] [Concomitant]
     Dosage: UNK
  9. MAGNESIUM [Concomitant]
     Active Substance: MAGNESIUM
     Dosage: UNK
  10. CALCIUM [Concomitant]
     Active Substance: CALCIUM
     Dosage: UNK (500 MG-100 TAB CHEW)

REACTIONS (12)
  - Dry skin [Unknown]
  - Platelet count decreased [Unknown]
  - Abnormal dreams [Unknown]
  - Fatigue [Unknown]
  - Headache [Unknown]
  - Hypertension [Unknown]
  - Onychoclasis [Unknown]
  - White blood cell count decreased [Unknown]
  - Decreased appetite [Unknown]
  - White blood cell count abnormal [Unknown]
  - Gingival bleeding [Unknown]
  - Asthenia [Unknown]

NARRATIVE: CASE EVENT DATE: 2020
